FAERS Safety Report 6886917-7 (Version None)
Quarter: 2010Q3

REPORT INFORMATION
  Report Type: 
  Country: None (occurrence: None)
  Receive Date: 20100730
  Receipt Date: 20100726
  Transmission Date: 20110219
  Serious: Yes (Death, Hospitalization, Other)
  Sender: FDA-Public Use
  Company Number: JP-BAYER-201012828BYL

PATIENT
  Age: 76 Year
  Sex: Male
  Weight: 64 kg

DRUGS (46)
  1. NEXAVAR [Suspect]
     Indication: HEPATIC NEOPLASM MALIGNANT
     Dosage: TOTAL DAILY DOSE: 800 MG  UNIT DOSE: 200 MG
     Route: 048
     Dates: start: 20100122, end: 20100224
  2. NEXAVAR [Suspect]
     Dosage: TOTAL DAILY DOSE: 400 MG  UNIT DOSE: 200 MG
     Route: 048
     Dates: start: 20100304, end: 20100510
  3. NEXAVAR [Suspect]
     Dosage: TOTAL DAILY DOSE: 800 MG  UNIT DOSE: 200 MG
     Route: 048
     Dates: start: 20100511, end: 20100605
  4. GASTER D [Concomitant]
     Route: 048
     Dates: start: 20100608
  5. GASTER D [Concomitant]
     Route: 048
     Dates: start: 20091204
  6. GASLON N_OD [Concomitant]
     Route: 048
     Dates: start: 20091204
  7. BIOFERMIN [Concomitant]
     Route: 048
     Dates: start: 20091204
  8. URSO 250 [Concomitant]
     Route: 048
     Dates: start: 20091204
  9. MAGMITT [Concomitant]
     Route: 048
     Dates: start: 20091204
  10. UREPEARL [Concomitant]
     Indication: PALMAR-PLANTAR ERYTHRODYSAESTHESIA SYNDROME
     Route: 061
     Dates: start: 20100204
  11. UREPEARL [Concomitant]
     Route: 061
     Dates: start: 20100420
  12. SAHNE [Concomitant]
     Indication: PALMAR-PLANTAR ERYTHRODYSAESTHESIA SYNDROME
     Route: 061
     Dates: start: 20100202
  13. SAHNE [Concomitant]
     Route: 061
     Dates: start: 20100420
  14. LOPEMIN [Concomitant]
     Dosage: UNIT DOSE: 1 MG
     Route: 048
     Dates: start: 20100525, end: 20100603
  15. LOXONIN [Concomitant]
     Dosage: UNIT DOSE: 60 MG
     Route: 048
     Dates: start: 20100603
  16. MUCOSTA [Concomitant]
     Dosage: UNIT DOSE: 100 MG
     Route: 048
     Dates: start: 20100603
  17. SOLULACT [Concomitant]
     Dosage: TOTAL DAILY DOSE: 500 ML  UNIT DOSE: 500 ML
     Route: 041
     Dates: start: 20100603, end: 20100603
  18. SOLULACT [Concomitant]
     Dosage: TOTAL DAILY DOSE: 500 ML  UNIT DOSE: 500 ML
     Route: 041
     Dates: start: 20100606, end: 20100606
  19. SOLULACT [Concomitant]
     Dosage: UNIT DOSE: 500 ML
     Route: 041
     Dates: start: 20100608
  20. NEO-MINOPHAGEN C [Concomitant]
     Dosage: UNIT DOSE: 20 ML
     Route: 041
     Dates: start: 20100609
  21. NEO-MINOPHAGEN C [Concomitant]
     Route: 041
     Dates: start: 20100603, end: 20100603
  22. LASIX [Concomitant]
     Dosage: UNIT DOSE: 20 MG
     Route: 042
     Dates: start: 20100610
  23. LASIX [Concomitant]
     Dosage: UNIT DOSE: 20 MG
     Route: 048
     Dates: start: 20100606, end: 20100613
  24. ALDACTONE [Concomitant]
     Dosage: UNIT DOSE: 25 MG
     Route: 048
     Dates: start: 20100606
  25. LIVACT [Concomitant]
     Dosage: UNIT DOSE: 4.15 G
     Route: 048
     Dates: start: 20100606
  26. SOL-MELCORT [Concomitant]
     Dosage: UNIT DOSE: 500 MG
     Route: 041
     Dates: start: 20100608, end: 20100610
  27. SOL-MELCORT [Concomitant]
     Dosage: UNIT DOSE: 125 MG
     Route: 041
     Dates: start: 20100611
  28. ZOSYN [Concomitant]
     Dosage: UNIT DOSE: 4.5 G
     Route: 041
     Dates: start: 20100608, end: 20100613
  29. CIPROXAN-I.V. [Concomitant]
     Dosage: UNIT DOSE: 300 MG
     Route: 041
     Dates: start: 20100608
  30. SEISHOKU [Concomitant]
     Dosage: UNIT DOSE: 100 ML
     Route: 041
     Dates: start: 20100608
  31. SOLDEM 3A [Concomitant]
     Dosage: UNIT DOSE: 1000 ML
     Route: 041
     Dates: start: 20100609, end: 20100613
  32. SOLDEM 3A [Concomitant]
     Dosage: UNIT DOSE: 500 ML
     Route: 041
     Dates: start: 20100608, end: 20100608
  33. ELASPOL [Concomitant]
     Dosage: UNIT DOSE: 100 MG
     Route: 041
     Dates: start: 20100608
  34. INOVAN [Concomitant]
     Dosage: UNIT DOSE: 0.3 %
     Route: 041
     Dates: start: 20100608
  35. SOLULACT [Concomitant]
     Dosage: UNIT DOSE: 500 ML
     Route: 041
     Dates: start: 20100608
  36. KAMAG G [Concomitant]
     Route: 048
     Dates: start: 20100608
  37. URDESTON [Concomitant]
     Dosage: UNIT DOSE: 100 MG
     Route: 048
     Dates: start: 20100608
  38. BIO-THREE [Concomitant]
     Route: 048
     Dates: start: 20100608
  39. PALANCON [Concomitant]
     Dosage: UNIT DOSE: 10 %
     Route: 048
     Dates: start: 20100608
  40. VITAMEDIN [Concomitant]
     Route: 042
     Dates: start: 20100609
  41. BIOFERMIN R [Concomitant]
     Route: 048
     Dates: start: 20100610
  42. NOVO HEPARIN [Concomitant]
     Dosage: UNIT DOSE: 5000 U
     Route: 041
     Dates: start: 20100608
  43. NOR-ADRENALIN [Concomitant]
     Dosage: UNIT DOSE: 1 MG
     Route: 041
     Dates: start: 20100609
  44. DIPRIVAN [Concomitant]
     Dosage: UNIT DOSE: 1 %
     Route: 041
     Dates: start: 20100609, end: 20100614
  45. PRECEDEX [Concomitant]
     Dosage: UNIT DOSE: 200 ?G
     Route: 041
     Dates: start: 20100609
  46. OMEPRAL [Concomitant]
     Dosage: UNIT DOSE: 20 MG
     Route: 041
     Dates: start: 20100609

REACTIONS (9)
  - ALOPECIA [None]
  - DIARRHOEA [None]
  - HEPATIC FAILURE [None]
  - HEPATIC FUNCTION ABNORMAL [None]
  - HYPERTENSION [None]
  - INTERSTITIAL LUNG DISEASE [None]
  - PALMAR-PLANTAR ERYTHRODYSAESTHESIA SYNDROME [None]
  - RENAL IMPAIRMENT [None]
  - UPPER GASTROINTESTINAL HAEMORRHAGE [None]
